FAERS Safety Report 7775209-X (Version None)
Quarter: 2011Q3

REPORT INFORMATION
  Report Type: 
  Country: None (occurrence: None)
  Receive Date: 20110921
  Receipt Date: 20110907
  Transmission Date: 20111222
  Serious: Yes (Hospitalization)
  Sender: FDA-Public Use
  Company Number: THQ2011A05662

PATIENT
  Age: 57 Year
  Sex: Male

DRUGS (4)
  1. DIAMICRON MR (GLICLAZIDE) [Concomitant]
  2. GLUCOPHAGE (METFORMIN HYDROHLORIDE) [Concomitant]
  3. COMPETACT (PIOGLITAZONE HYDROCHLORIDE, METFORMIN HYDROCHLORIDE) [Suspect]
     Indication: DIABETES MELLITUS
     Dosage: PER ORAL
     Route: 048
     Dates: start: 20101201, end: 20110812
  4. ACCUPRON (QUINAPRIL HYDROCHLORIDE) [Concomitant]

REACTIONS (1)
  - RENAL FAILURE ACUTE [None]
